FAERS Safety Report 7472931-X (Version None)
Quarter: 2011Q2

REPORT INFORMATION
  Report Type: 
  Country: None (occurrence: None)
  Receive Date: 20110503
  Receipt Date: 20110412
  Transmission Date: 20111010
  Serious: Yes (Other)
  Sender: FDA-Public Use
  Company Number: 031093

PATIENT
  Sex: Female
  Weight: 86.2 kg

DRUGS (8)
  1. CIMZIA [Suspect]
     Indication: RHEUMATOID ARTHRITIS
     Dosage: (SUBCUTANEOUS), (400 MG 1X/MONTH SUBCUTANEOUS)
     Route: 058
     Dates: end: 20101101
  2. CIMZIA [Suspect]
     Indication: RHEUMATOID ARTHRITIS
     Dosage: (SUBCUTANEOUS), (400 MG 1X/MONTH SUBCUTANEOUS)
     Route: 058
     Dates: start: 20110101, end: 20110324
  3. VESICARE [Concomitant]
  4. PRILOSEC [Concomitant]
  5. VITAMIN D [Concomitant]
  6. CELEXA [Concomitant]
  7. ARAVA [Concomitant]
  8. KLONOPIN [Concomitant]

REACTIONS (5)
  - DRY MOUTH [None]
  - CANDIDIASIS [None]
  - FURUNCLE [None]
  - OROPHARYNGEAL PAIN [None]
  - ACNE [None]
